FAERS Safety Report 4311146-0 (Version None)
Quarter: 2004Q1

REPORT INFORMATION
  Report Type: 
  Country: None (occurrence: None)
  Receive Date: 20040302
  Receipt Date: 20040219
  Transmission Date: 20041129
  Serious: Yes (Death, Hospitalization)
  Sender: FDA-Public Use
  Company Number: 2004008268

PATIENT
  Age: 84 Year
  Sex: Male

DRUGS (8)
  1. ZOLOFT [Suspect]
     Dosage: 50 MG
     Dates: start: 20040101
  2. COLCHIMAX (COLCHICINE, DICYCLOVERINE HYDROCHLORIDE) [Suspect]
     Indication: ILL-DEFINED DISORDER
  3. CALCIUM CHANNEL BLOCKERS [Concomitant]
  4. ALL OTHER THERAPEUTIC PRODUCTS [Concomitant]
  5. IMIDAPRIL (IMIDAPRIL) [Concomitant]
  6. DI-GESIC (PARACETAMOL, DEXTROPROPOXYPHENE) [Concomitant]
  7. ZOLPIDEM TARTRATE [Concomitant]
  8. ALLOPURINOL [Concomitant]

REACTIONS (8)
  - ASTHENIA [None]
  - COLONIC PSEUDO-OBSTRUCTION [None]
  - DIARRHOEA [None]
  - ELECTROLYTE IMBALANCE [None]
  - HYPONATRAEMIA [None]
  - LOSS OF CONSCIOUSNESS [None]
  - MALAISE [None]
  - SYNCOPE VASOVAGAL [None]
